FAERS Safety Report 12962449 (Version 3)
Quarter: 2018Q4

REPORT INFORMATION
  Report Type: Spontaneous
  Country: US (occurrence: US)
  Receive Date: 20161121
  Receipt Date: 20181011
  Transmission Date: 20190204
  Serious: No
  Sender: FDA-Public Use
  Company Number: US-ALLERGAN-1668801US

PATIENT
  Age: 82 Year
  Sex: Female

DRUGS (3)
  1. COMBIGAN [Suspect]
     Active Substance: BRIMONIDINE TARTRATE\TIMOLOL MALEATE
     Indication: GLAUCOMA
     Dosage: 2 GTT, BID
     Route: 047
     Dates: start: 201610
  2. TIMOLOL. [Concomitant]
     Active Substance: TIMOLOL
     Indication: GLAUCOMA
     Dosage: UNK
  3. COMBIGAN [Suspect]
     Active Substance: BRIMONIDINE TARTRATE\TIMOLOL MALEATE
     Dosage: UNK UNK, BID
     Route: 047

REACTIONS (33)
  - Nightmare [Unknown]
  - Musculoskeletal pain [Unknown]
  - Skin irritation [Unknown]
  - Chills [Unknown]
  - Vertigo [Unknown]
  - Peripheral coldness [Unknown]
  - Tinnitus [Unknown]
  - Confusional state [Unknown]
  - Rash [Unknown]
  - Weight decreased [Unknown]
  - Cataract [Unknown]
  - Accidental exposure to product [Unknown]
  - Fatigue [Unknown]
  - Constipation [Unknown]
  - Nervousness [Unknown]
  - Asthenia [Unknown]
  - Blood glucose abnormal [Unknown]
  - Hypersensitivity [Unknown]
  - Hyperhidrosis [Unknown]
  - Glaucoma [Unknown]
  - Product dispensing error [Unknown]
  - Depression [Unknown]
  - Memory impairment [Unknown]
  - General physical condition abnormal [Unknown]
  - Drug hypersensitivity [Unknown]
  - Depression [Unknown]
  - Sleep disorder [Unknown]
  - Product dose omission [Unknown]
  - Malaise [Unknown]
  - Eye irritation [Unknown]
  - Eye pain [Unknown]
  - Visual impairment [Unknown]
  - Dizziness [Unknown]

NARRATIVE: CASE EVENT DATE: 201610
